FAERS Safety Report 4410694-2 (Version None)
Quarter: 2004Q3

REPORT INFORMATION
  Report Type: 
  Country: None (occurrence: None)
  Receive Date: 20040728
  Receipt Date: 20040728
  Transmission Date: 20050211
  Serious: Yes (Other)
  Sender: FDA-Public Use
  Company Number: None

PATIENT
  Sex: Female

DRUGS (2)
  1. SYNTHROID [Suspect]
     Indication: GOITRE
     Dosage: PO/ LIFETIME
     Route: 048
  2. LEVOXYL [Suspect]

REACTIONS (1)
  - UNEVALUABLE EVENT [None]
